FAERS Safety Report 9440787 (Version 4)
Quarter: 2013Q4

REPORT INFORMATION
  Report Type: Report from Study
  Country: US (occurrence: US)
  Receive Date: 20130805
  Receipt Date: 20131016
  Transmission Date: 20140711
  Serious: Yes (Other)
  Sender: FDA-Public Use
  Company Number: US-JNJFOC-20130718513

PATIENT
  Age: 74 Year
  Sex: Female

DRUGS (1)
  1. REMICADE [Suspect]
     Indication: CROHN^S DISEASE
     Route: 042
     Dates: start: 20130419, end: 20130504

REACTIONS (5)
  - Cardiac failure [Not Recovered/Not Resolved]
  - Dermatitis [Recovered/Resolved]
  - Stasis dermatitis [Recovered/Resolved]
  - Urticaria [Unknown]
  - Rash [Recovered/Resolved]
